FAERS Safety Report 9228623 (Version 1)
Quarter: 2013Q1

REPORT INFORMATION
  Report Type: Spontaneous
  Country: US (occurrence: None)
  Receive Date: 20121018
  Receipt Date: 20121018
  Transmission Date: 20140127
  Serious: Yes (Other)
  Sender: FDA-Public Use
  Company Number: FK201201316

PATIENT
  Sex: Female

DRUGS (1)
  1. NAROPIN INJECTION(ROPIVACAINE HYDROCHLORIDE) (ROPIVACAINE HYDROCHLORIDE) [Suspect]
     Indication: NERVE BLOCK
     Dates: start: 20120502

REACTIONS (1)
  - Drug effect decreased [None]
